FAERS Safety Report 6299113-1 (Version None)
Quarter: 2009Q3

REPORT INFORMATION
  Report Type: 
  Country: None (occurrence: None)
  Receive Date: 20090806
  Receipt Date: 20090803
  Transmission Date: 20100115
  Serious: Yes (Hospitalization, Other)
  Sender: FDA-Public Use
  Company Number: FR-BRISTOL-MYERS SQUIBB COMPANY-14727291

PATIENT
  Age: 78 Year
  Sex: Female

DRUGS (8)
  1. COUMADIN [Suspect]
     Indication: ATRIAL FIBRILLATION
     Route: 048
     Dates: end: 20090720
  2. AMLOR [Concomitant]
  3. LASIX [Concomitant]
  4. TAHOR [Concomitant]
  5. PANTOPRAZOLE SODIUM [Concomitant]
  6. SOLUPRED [Concomitant]
  7. IXPRIM [Concomitant]
  8. ATENOLOL [Concomitant]

REACTIONS (5)
  - ANAEMIA [None]
  - FALL [None]
  - HAEMATOMA [None]
  - INTERNATIONAL NORMALISED RATIO INCREASED [None]
  - PYELONEPHRITIS [None]
